FAERS Safety Report 20504601 (Version 1)
Quarter: 2022Q1

REPORT INFORMATION
  Report Type: Spontaneous
  Country: US (occurrence: US)
  Receive Date: 20220223
  Receipt Date: 20220223
  Transmission Date: 20220424
  Serious: Yes (Other)
  Sender: FDA-Public Use
  Company Number: US-BIOVITRUM-2021US10793

PATIENT
  Age: 68 Year
  Sex: Female

DRUGS (3)
  1. KINERET [Suspect]
     Active Substance: ANAKINRA
     Indication: Crystal arthropathy
     Route: 058
     Dates: start: 202011
  2. KINERET [Suspect]
     Active Substance: ANAKINRA
     Indication: Autoinflammatory disease
     Route: 058
     Dates: start: 20201118
  3. FENTANYL [Suspect]
     Active Substance: FENTANYL

REACTIONS (6)
  - Osteonecrosis [Unknown]
  - Type 2 diabetes mellitus [Unknown]
  - Influenza [Unknown]
  - Urticaria [Unknown]
  - Rash [Unknown]
  - Off label use [Unknown]

NARRATIVE: CASE EVENT DATE: 20201118
